FAERS Safety Report 24871596 (Version 2)
Quarter: 2025Q3

REPORT INFORMATION
  Report Type: Spontaneous
  Country: US (occurrence: US)
  Receive Date: 20250122
  Receipt Date: 20250809
  Transmission Date: 20251020
  Serious: Yes (Hospitalization, Other)
  Sender: ALEXION PHARMACEUTICALS
  Company Number: US-ASTRAZENECA-202501USA015231US

PATIENT
  Age: 72 Year
  Sex: Female

DRUGS (3)
  1. FARXIGA [Suspect]
     Active Substance: DAPAGLIFLOZIN PROPANEDIOL
  2. METOPROLOL TARTRATE [Suspect]
     Active Substance: METOPROLOL TARTRATE
  3. ENTRESTO [Suspect]
     Active Substance: SACUBITRIL\VALSARTAN
     Indication: Cardiac failure

REACTIONS (19)
  - Restless legs syndrome [Recovered/Resolved]
  - Rheumatoid arthritis [Unknown]
  - Fall [Recovered/Resolved]
  - Intentional product misuse [Unknown]
  - Product dose omission issue [Unknown]
  - Blood potassium increased [Unknown]
  - Fatigue [Recovering/Resolving]
  - Pain [Unknown]
  - Insomnia [Unknown]
  - Peripheral swelling [Unknown]
  - Weight fluctuation [Unknown]
  - Pollakiuria [Unknown]
  - Pain in extremity [Unknown]
  - Vitreous floaters [Recovering/Resolving]
  - Haematoma [Recovering/Resolving]
  - Catheterisation cardiac [Recovered/Resolved]
  - Catheterisation cardiac normal [Recovered/Resolved]
  - Weight decreased [Unknown]
  - Weight decreased [Recovering/Resolving]

NARRATIVE: CASE EVENT DATE: 20231001
